FAERS Safety Report 14200386 (Version 1)
Quarter: 2017Q4

REPORT INFORMATION
  Report Type: Spontaneous
  Country: FR (occurrence: FR)
  Receive Date: 20171117
  Receipt Date: 20171117
  Transmission Date: 20180321
  Serious: Yes (Hospitalization, Other)
  Sender: FDA-Public Use
  Company Number: FR-PFIZER INC-2017487124

PATIENT
  Age: 97 Year
  Sex: Female

DRUGS (8)
  1. AMIODARONE [Concomitant]
     Active Substance: AMIODARONE
     Dosage: 200 MG, 1X/DAY
  2. LASILIX FAIBLE [Concomitant]
     Active Substance: FUROSEMIDE
     Dosage: 20 MG, 2X/DAY
  3. DIFFU K [Concomitant]
     Active Substance: POTASSIUM CHLORIDE
     Dosage: 1 DF, 1X/DAY
  4. XARELTO [Concomitant]
     Active Substance: RIVAROXABAN
     Dosage: 15 MG, 1X/DAY
  5. ALPRAZOLAM. [Concomitant]
     Active Substance: ALPRAZOLAM
     Dosage: 0.25 MG, 1X/DAY
  6. DAFALGAN [Concomitant]
     Active Substance: ACETAMINOPHEN
     Dosage: AS NEEDED, UP TO 2 DF THRICE DAILY
  7. ALPRESS [Suspect]
     Active Substance: PRAZOSIN
     Indication: HYPERTENSION
     Dosage: 2.5 MG, 2X/DAY
     Route: 048
     Dates: start: 20171012, end: 20171012
  8. PERINDOPRIL [Concomitant]
     Active Substance: PERINDOPRIL
     Dosage: 8 MG, 1X/DAY

REACTIONS (7)
  - Epistaxis [Unknown]
  - Loss of consciousness [Recovered/Resolved]
  - Blood pressure decreased [Recovered/Resolved]
  - Dizziness [Unknown]
  - Wound complication [Unknown]
  - Fall [Recovered/Resolved]
  - Traumatic haematoma [Unknown]

NARRATIVE: CASE EVENT DATE: 20171012
